FAERS Safety Report 14896761 (Version 1)
Quarter: 2018Q2

REPORT INFORMATION
  Report Type: Spontaneous
  Country: US (occurrence: US)
  Receive Date: 20180515
  Receipt Date: 20180515
  Transmission Date: 20180711
  Serious: No
  Sender: FDA-Public Use
  Company Number: US-ALKERMES INC.-ALK-2018-002557

PATIENT
  Age: 23 Year
  Sex: Male
  Weight: 77.98 kg

DRUGS (2)
  1. ARISTADA [Suspect]
     Active Substance: ARIPIPRAZOLE LAUROXIL
     Dosage: UNK, QMO
     Route: 030
     Dates: start: 201709
  2. ARISTADA [Suspect]
     Active Substance: ARIPIPRAZOLE LAUROXIL
     Indication: SCHIZOPHRENIA
     Dosage: 1064 MG, Q2MO
     Route: 030
     Dates: start: 2017

REACTIONS (3)
  - Fall [Unknown]
  - Tremor [Unknown]
  - Coordination abnormal [Not Recovered/Not Resolved]

NARRATIVE: CASE EVENT DATE: 201804
